FAERS Safety Report 7765046-4 (Version None)
Quarter: 2011Q3

REPORT INFORMATION
  Report Type: 
  Country: None (occurrence: None)
  Receive Date: 20110921
  Receipt Date: 20110914
  Transmission Date: 20111222
  Serious: Yes (Other)
  Sender: FDA-Public Use
  Company Number: MX-SANOFI-AVENTIS-2011SA060076

PATIENT
  Age: 65 Year
  Sex: Female
  Weight: 41 kg

DRUGS (3)
  1. ALL OTHER THERAPEUTIC PRODUCTS [Concomitant]
  2. GLYBURIDE [Suspect]
     Indication: TYPE 2 DIABETES MELLITUS
     Route: 048
     Dates: start: 20101201
  3. GLIMEPIRIDE/METFORMIN [Suspect]
     Indication: TYPE 2 DIABETES MELLITUS
     Dosage: STRENGTH: GLIMEPIRIDE/METFORMIN 2 MG + 1000 MG
     Route: 048
     Dates: start: 20101201

REACTIONS (2)
  - CATARACT [None]
  - HYPERGLYCAEMIA [None]
